FAERS Safety Report 17553338 (Version 1)
Quarter: 2020Q1

REPORT INFORMATION
  Report Type: Report from Study
  Country: BR (occurrence: BR)
  Receive Date: 20200317
  Receipt Date: 20200317
  Transmission Date: 20200409
  Serious: Yes (Other)
  Sender: FDA-Public Use
  Company Number: BR-BIOGEN-2019BI00796319

PATIENT
  Age: 58 Year
  Sex: Female

DRUGS (2)
  1. CALCIUM 600 [Concomitant]
     Active Substance: CALCIUM
     Indication: PRODUCT USED FOR UNKNOWN INDICATION
     Route: 065
  2. TYSABRI [Suspect]
     Active Substance: NATALIZUMAB
     Indication: MULTIPLE SCLEROSIS
     Route: 042
     Dates: start: 201802

REACTIONS (7)
  - Calcium deficiency [Not Recovered/Not Resolved]
  - Peripheral circulatory failure [Not Recovered/Not Resolved]
  - Fatigue [Unknown]
  - Osteopenia [Not Recovered/Not Resolved]
  - Foot fracture [Recovered/Resolved with Sequelae]
  - Clavicle fracture [Recovered/Resolved]
  - Colitis ulcerative [Not Recovered/Not Resolved]

NARRATIVE: CASE EVENT DATE: 20191007
